FAERS Safety Report 13946555 (Version 3)
Quarter: 2018Q3

REPORT INFORMATION
  Report Type: Spontaneous
  Country: US (occurrence: US)
  Receive Date: 20170907
  Receipt Date: 20180717
  Transmission Date: 20181010
  Serious: Yes (Hospitalization)
  Sender: FDA-Public Use
  Company Number: US-DSJP-DSU-2017-135668

PATIENT

DRUGS (2)
  1. BENICAR [Suspect]
     Active Substance: OLMESARTAN MEDOXOMIL
     Indication: PRODUCT USED FOR UNKNOWN INDICATION
     Dosage: 40 MG, QD
     Route: 048
     Dates: start: 20070702, end: 20170821
  2. BENICAR HCT [Suspect]
     Active Substance: HYDROCHLOROTHIAZIDE\OLMESARTAN MEDOXOMIL
     Indication: PRODUCT USED FOR UNKNOWN INDICATION
     Dosage: 40?25MG, QD
     Route: 048
     Dates: start: 20070702, end: 20170821

REACTIONS (4)
  - Azotaemia [Recovered/Resolved]
  - Acute kidney injury [Recovering/Resolving]
  - Irritable bowel syndrome [Recovering/Resolving]
  - Diabetic gastroparesis [Recovering/Resolving]

NARRATIVE: CASE EVENT DATE: 20120130
